FAERS Safety Report 20087867 (Version 2)
Quarter: 2021Q4

REPORT INFORMATION
  Report Type: Spontaneous
  Country: JP (occurrence: JP)
  Receive Date: 20211118
  Receipt Date: 20211129
  Transmission Date: 20220303
  Serious: Yes (Hospitalization)
  Sender: FDA-Public Use
  Company Number: JP-TEVA-2021-JP-1977385

PATIENT
  Age: 36 Year
  Sex: Female

DRUGS (3)
  1. LETROZOLE [Suspect]
     Active Substance: LETROZOLE
     Indication: Controlled ovarian stimulation
     Dosage: 5 MILLIGRAM DAILY;
     Route: 048
  2. UROFOLLITROPIN [Suspect]
     Active Substance: UROFOLLITROPIN
     Indication: Controlled ovarian stimulation
     Dosage: CONTINUED FOR 11 DAYS (TOTAL DOSE 2625 UNITS)
     Route: 065
  3. CHORIONIC GONADOTROPIN [Suspect]
     Active Substance: CHORIOGONADOTROPIN ALFA
     Indication: Controlled ovarian stimulation
     Route: 065

REACTIONS (3)
  - Ovarian hyperstimulation syndrome [Unknown]
  - Oliguria [Recovering/Resolving]
  - Ascites [Recovering/Resolving]
